FAERS Safety Report 9226620 (Version 2)
Quarter: 2013Q2

REPORT INFORMATION
  Report Type: Report from Study
  Country: TW (occurrence: TW)
  Receive Date: 20130412
  Receipt Date: 20130517
  Transmission Date: 20140414
  Serious: Yes (Hospitalization)
  Sender: FDA-Public Use
  Company Number: TW-009507513-1304TWN004854

PATIENT
  Age: 26 Year
  Sex: Male
  Weight: 76.3 kg

DRUGS (4)
  1. ASENAPINE MALEATE-SCHIZOPHRENIA [Suspect]
     Indication: SCHIZOPHRENIA
     Dosage: 10 MG, BID
     Route: 048
     Dates: start: 20121231, end: 20130408
  2. ASENAPINE MALEATE-SCHIZOPHRENIA [Suspect]
     Dosage: UNK
  3. LORAZEPAM [Concomitant]
     Dosage: 8 MG, UNK
     Route: 048
     Dates: start: 20121206, end: 20130408
  4. TRIHEXYPHENIDYL HYDROCHLORIDE [Concomitant]
     Dosage: 4 MG, BID
     Dates: start: 20121122, end: 20130408

REACTIONS (1)
  - Schizophrenia [Recovering/Resolving]
